FAERS Safety Report 24756917 (Version 1)
Quarter: 2024Q4

REPORT INFORMATION
  Report Type: Spontaneous
  Country: US (occurrence: US)
  Receive Date: 20241220
  Receipt Date: 20241220
  Transmission Date: 20250115
  Serious: Yes (Other)
  Sender: CSL BEHRING
  Company Number: US-BEH-2024187708

PATIENT
  Sex: Male

DRUGS (1)
  1. HIZENTRA [Suspect]
     Active Substance: HUMAN IMMUNOGLOBULIN G
     Indication: Immunodeficiency common variable
     Dosage: 6 G, QW
     Route: 058

REACTIONS (5)
  - Kidney infection [Unknown]
  - Sinusitis [Unknown]
  - Cellulitis staphylococcal [Unknown]
  - Erythema [Unknown]
  - Peripheral swelling [Unknown]
